FAERS Safety Report 13076712 (Version 1)
Quarter: 2016Q4

REPORT INFORMATION
  Report Type: Spontaneous
  Country: US (occurrence: US)
  Receive Date: 20161230
  Receipt Date: 20161230
  Transmission Date: 20170207
  Serious: Yes (Hospitalization)
  Sender: FDA-Public Use
  Company Number: US-COLLEGIUM PHARMACEUTICAL, INC.-2016CGM00056

PATIENT
  Age: 58 Year
  Sex: Male

DRUGS (2)
  1. OXYCODONE [Suspect]
     Active Substance: OXYCODONE
     Route: 065
  2. UNSPECIFIED HOME MEDICATIONS [Concomitant]
     Route: 065

REACTIONS (1)
  - Pulmonary fibrosis [Recovering/Resolving]
